FAERS Safety Report 8790617 (Version 1)
Quarter: 2012Q4

REPORT INFORMATION
  Report Type: Spontaneous
  Country: US (occurrence: None)
  Receive Date: 20120912
  Receipt Date: 20120912
  Transmission Date: 20130627
  Serious: Yes (Life-Threatening)
  Sender: FDA-Public Use
  Company Number: None

PATIENT
  Age: 57 Year
  Sex: Male
  Weight: 88.45 kg

DRUGS (2)
  1. HUMIRA PEN 40 MG [Suspect]
     Indication: CROHN^S DISEASE
     Route: 058
     Dates: start: 20091020, end: 20120311
  2. HUMIRA PEN 40 MG [Suspect]
     Indication: PLAQUE PSORIASIS
     Route: 058
     Dates: start: 20091020, end: 20120311

REACTIONS (1)
  - Mantle cell lymphoma [None]
